FAERS Safety Report 10784035 (Version 4)
Quarter: 2015Q1

REPORT INFORMATION
  Report Type: Spontaneous
  Country: US (occurrence: US)
  Receive Date: 20150211
  Receipt Date: 20150302
  Transmission Date: 20150721
  Serious: Yes (Hospitalization, Other)
  Sender: FDA-Public Use
  Company Number: US-AMGEN-USASP2015012070

PATIENT
  Age: 66 Year
  Sex: Male

DRUGS (5)
  1. PREDNISONE. [Concomitant]
     Active Substance: PREDNISONE
     Indication: PAIN
  2. ENBREL [Suspect]
     Active Substance: ETANERCEPT
     Indication: RHEUMATOID ARTHRITIS
     Dosage: 50 MG, QWK
     Route: 065
     Dates: start: 20150110, end: 20150131
  3. PREDNISONE. [Concomitant]
     Active Substance: PREDNISONE
     Indication: URTICARIA
  4. PREDNISONE. [Concomitant]
     Active Substance: PREDNISONE
     Indication: RASH
     Dosage: UNK
  5. PREDNISONE. [Concomitant]
     Active Substance: PREDNISONE
     Indication: SWELLING

REACTIONS (4)
  - Sleep disorder [Unknown]
  - Depressed mood [Not Recovered/Not Resolved]
  - Stevens-Johnson syndrome [Not Recovered/Not Resolved]
  - Hypersensitivity [Unknown]

NARRATIVE: CASE EVENT DATE: 2015
